FAERS Safety Report 4998225-X (Version None)
Quarter: 2006Q2

REPORT INFORMATION
  Report Type: 
  Country: None (occurrence: None)
  Receive Date: 20060508
  Receipt Date: 20060501
  Transmission Date: 20061013
  Serious: Yes (Other)
  Sender: FDA-Public Use
  Company Number: US-2004-034637

PATIENT
  Age: 55 Year
  Sex: Female
  Weight: 63.5 kg

DRUGS (7)
  1. CLIMARA [Suspect]
     Indication: MENOPAUSAL SYMPTOMS
     Dosage: 0.1 MG/D, CONT, TRANSDERMAL
     Route: 062
  2. PREMPRO [Suspect]
     Indication: MENOPAUSAL SYMPTOMS
  3. PROVERA [Suspect]
     Indication: MENOPAUSAL SYMPTOMS
  4. NEXIUM [Concomitant]
  5. ADVAIR (SALMETEROL XINAFOATE, FLUTICASONE PROPIONATE) [Concomitant]
  6. ALLEGRA [Concomitant]
  7. DIET FORMULATIONS [Concomitant]

REACTIONS (6)
  - BREAST CANCER FEMALE [None]
  - BREAST CANCER STAGE II [None]
  - DEPRESSION [None]
  - HOT FLUSH [None]
  - OESTROGEN RECEPTOR ASSAY POSITIVE [None]
  - PROGESTERONE RECEPTOR ASSAY POSITIVE [None]
